FAERS Safety Report 5902444-5 (Version None)
Quarter: 2008Q3

REPORT INFORMATION
  Report Type: 
  Country: None (occurrence: None)
  Receive Date: 20080929
  Receipt Date: 20080916
  Transmission Date: 20090109
  Serious: Yes (Other)
  Sender: FDA-Public Use
  Company Number: GB-ELI_LILLY_AND_COMPANY-GB200809004006

PATIENT
  Age: 24 Year
  Sex: Female

DRUGS (12)
  1. CYMBALTA [Suspect]
     Dosage: 60 MG, DAILY (1/D)
     Route: 048
  2. CONCERTA [Concomitant]
     Indication: ABNORMAL BEHAVIOUR
     Dosage: 18 MG, UNK
     Route: 048
  3. BECLOMETHASONE DIPROPIONATE [Concomitant]
     Dosage: 500 UG, 2/D
  4. CLEXANE [Concomitant]
     Dosage: 40 MG, DAILY (1/D)
  5. CODEINE PHOSPHATE [Concomitant]
     Dosage: UNK, DAILY (1/D)
  6. IBUPROFEN [Concomitant]
     Dosage: 400 MG, 3/D
     Route: 048
  7. MACROGOL [Concomitant]
     Indication: CONSTIPATION
     Dosage: 13.8 G, 2/D
  8. NICOTINE [Concomitant]
     Dosage: 10 MG, EVERY 16 HOURS
     Route: 062
  9. ORAMORPH SR [Concomitant]
     Dosage: 10 MG, 4/D
  10. ACETAMINOPHEN [Concomitant]
     Dosage: 500 MG, EIGHT TIMES A DAY
     Route: 048
  11. PEPTAC                             /01521901/ [Concomitant]
  12. SALBUTAMOL [Concomitant]
     Dosage: 200 UG, 4/D

REACTIONS (3)
  - CONSTIPATION [None]
  - DRUG EXPOSURE DURING PREGNANCY [None]
  - PUBIC PAIN [None]
